FAERS Safety Report 25422903 (Version 1)
Quarter: 2025Q2

REPORT INFORMATION
  Report Type: Spontaneous
  Country: IT (occurrence: IT)
  Receive Date: 20250611
  Receipt Date: 20250611
  Transmission Date: 20250716
  Serious: Yes (Other)
  Sender: AUROBINDO
  Company Number: IT-002147023-NVSC2022IT246752

PATIENT
  Age: 21 Year
  Sex: Male
  Weight: 55 kg

DRUGS (9)
  1. AMOXICILLIN\CLAVULANIC ACID [Suspect]
     Active Substance: AMOXICILLIN\CLAVULANIC ACID
     Indication: Tuberculosis of central nervous system
     Dosage: 6.6 GRAM, ONCE A DAY (2.2 G, TID)
     Route: 065
  2. LEVOFLOXACIN [Suspect]
     Active Substance: LEVOFLOXACIN
     Indication: Tuberculosis of central nervous system
     Dosage: 1000 MILLIGRAM, ONCE A DAY (500 MG, BID )
     Route: 042
  3. LINEZOLID [Suspect]
     Active Substance: LINEZOLID
     Indication: Tuberculosis of central nervous system
     Dosage: 1200 MILLIGRAM, ONCE A DAY (600 MG, BID)
     Route: 042
  4. LINEZOLID [Suspect]
     Active Substance: LINEZOLID
     Dosage: 600 MILLIGRAM, ONCE A DAY
     Route: 048
  5. MEROPENEM [Suspect]
     Active Substance: MEROPENEM
     Indication: Tuberculosis of central nervous system
     Dosage: 6 GRAM, ONCE A DAY (2 G, TID)
     Route: 065
  6. BEDAQUILINE [Concomitant]
     Active Substance: BEDAQUILINE
     Indication: Tuberculosis of central nervous system
     Route: 065
  7. BEDAQUILINE [Concomitant]
     Active Substance: BEDAQUILINE
     Route: 065
  8. RIFABUTIN [Concomitant]
     Active Substance: RIFABUTIN
     Indication: Tuberculosis of central nervous system
     Route: 065
  9. AMIKACIN [Concomitant]
     Active Substance: AMIKACIN
     Indication: Tuberculosis of central nervous system
     Route: 065

REACTIONS (2)
  - Treatment failure [Unknown]
  - Product use in unapproved indication [Unknown]
